FAERS Safety Report 16907873 (Version 1)
Quarter: 2019Q4

REPORT INFORMATION
  Report Type: Spontaneous
  Country: US (occurrence: US)
  Receive Date: 20191011
  Receipt Date: 20191011
  Transmission Date: 20200122
  Serious: Yes (Hospitalization)
  Sender: FDA-Public Use
  Company Number: US-BAYER-2019-178345

PATIENT
  Age: 77 Year
  Sex: Female
  Weight: 40.82 kg

DRUGS (13)
  1. AVELOX [Suspect]
     Active Substance: MOXIFLOXACIN HYDROCHLORIDE
     Dosage: UNK
     Dates: start: 2019
  2. AMIFAMPRIDINE [Suspect]
     Active Substance: AMIFAMPRIDINE
     Indication: MYASTHENIC SYNDROME
     Dosage: 15 MG, QID
     Route: 048
  3. METOPROLOL. [Concomitant]
     Active Substance: METOPROLOL
     Dosage: 12.5 MG, PRN
  4. MULTAQ [Concomitant]
     Active Substance: DRONEDARONE
     Dosage: UNK UNK, BID
  5. FIRDAPSE [Suspect]
     Active Substance: AMIFAMPRIDINE
     Indication: MYASTHENIC SYNDROME
     Dosage: 20 MG, QID
     Route: 048
     Dates: end: 2019
  6. PRAVASTATIN. [Concomitant]
     Active Substance: PRAVASTATIN
     Indication: MYASTHENIC SYNDROME
     Dosage: 10 MG
  7. FIRDAPSE [Suspect]
     Active Substance: AMIFAMPRIDINE
     Indication: MYASTHENIC SYNDROME
     Dosage: 2 DF, QD
     Route: 048
  8. VITAMIN D 2000 [Concomitant]
     Active Substance: VITAMIN D NOS
     Dosage: 1000 IU, QD
  9. QVAR [Concomitant]
     Active Substance: BECLOMETHASONE DIPROPIONATE
     Dosage: UNK UNK, QD
     Route: 055
  10. ASPIRIN [ACETYLSALICYLIC ACID] [Concomitant]
     Active Substance: ASPIRIN
     Indication: CORONARY ARTERY DISEASE
     Dosage: 81 MG
  11. FUROSEMIDE. [Concomitant]
     Active Substance: FUROSEMIDE
     Dosage: UNK
  12. FIRDAPSE [Suspect]
     Active Substance: AMIFAMPRIDINE
     Indication: MYASTHENIC SYNDROME
     Dosage: 15 MG, QID
     Route: 048
     Dates: start: 201902
  13. METOPROLOL. [Concomitant]
     Active Substance: METOPROLOL
     Dosage: 25 MG

REACTIONS (17)
  - Dyspnoea [None]
  - Musculoskeletal chest pain [Recovered/Resolved]
  - Hypoaesthesia [Recovered/Resolved]
  - Hyponatraemia [Recovered/Resolved]
  - Sputum discoloured [None]
  - Malnutrition [Unknown]
  - Cough [None]
  - Peripheral swelling [Not Recovered/Not Resolved]
  - Pneumonia [None]
  - Fall [Unknown]
  - Cough [None]
  - Acute myocardial infarction [Recovered/Resolved]
  - Chronic obstructive pulmonary disease [Recovered/Resolved]
  - Pulmonary mass [Unknown]
  - Choking [Unknown]
  - Palpitations [None]
  - Atrial fibrillation [None]

NARRATIVE: CASE EVENT DATE: 201901
